FAERS Safety Report 5807407-6 (Version None)
Quarter: 2008Q3

REPORT INFORMATION
  Report Type: 
  Country: None (occurrence: None)
  Receive Date: 20080711
  Receipt Date: 20080626
  Transmission Date: 20090109
  Serious: Yes (Hospitalization)
  Sender: FDA-Public Use
  Company Number: DE-GENENTECH-257914

PATIENT
  Sex: Female

DRUGS (1)
  1. BEVACIZUMAB [Suspect]
     Indication: OVARIAN CANCER
     Dosage: 345 MG, Q3W
     Route: 042
     Dates: start: 20070518, end: 20080307

REACTIONS (2)
  - PERIPHERAL ISCHAEMIA [None]
  - PROTEINURIA [None]
